FAERS Safety Report 19567005 (Version 1)
Quarter: 2021Q3

REPORT INFORMATION
  Report Type: Spontaneous
  Country: JP (occurrence: JP)
  Receive Date: 20210714
  Receipt Date: 20210714
  Transmission Date: 20211014
  Serious: Yes (Other)
  Sender: FDA-Public Use
  Company Number: JP-SA-2021SA224917

PATIENT
  Age: 41 Year
  Sex: Male

DRUGS (1)
  1. ISONIAZID/RIFAMPICIN [Suspect]
     Active Substance: ISONIAZID\RIFAMPIN
     Indication: BONE TUBERCULOSIS

REACTIONS (1)
  - Pancytopenia [Unknown]
